FAERS Safety Report 9607774 (Version 2)
Quarter: 2014Q1

REPORT INFORMATION
  Report Type: Spontaneous
  Country: FR (occurrence: None)
  Receive Date: 20131004
  Receipt Date: 20140124
  Transmission Date: 20141002
  Serious: Yes (Hospitalization)
  Sender: FDA-Public Use
  Company Number: 1906945

PATIENT
  Age: 50 Year
  Sex: Female

DRUGS (1)
  1. CARBOPLATIN [Suspect]
     Indication: PRODUCT USED FOR UNKNOWN INDICATION
     Dosage: NOT PRECISED (DEPENDS ON CYCLE)?(HAD A TOTAL OF 7 COURSES )
     Route: 041
     Dates: end: 20120614

REACTIONS (7)
  - Malaise [None]
  - Vomiting [None]
  - Diarrhoea [None]
  - Urticaria [None]
  - Nausea [None]
  - Anaphylactic reaction [None]
  - Tachycardia [None]
